FAERS Safety Report 24283208 (Version 1)
Quarter: 2024Q3

REPORT INFORMATION
  Report Type: Spontaneous
  Country: US (occurrence: None)
  Receive Date: 20240903
  Receipt Date: 20240903
  Transmission Date: 20241017
  Serious: Yes (Death)
  Sender: Public
  Company Number: None

PATIENT
  Age: 58 Year
  Sex: Female
  Weight: 77.4 kg

DRUGS (6)
  1. OZEMPIC [Suspect]
     Active Substance: SEMAGLUTIDE
     Indication: Diabetes mellitus
     Dosage: OTHER FREQUENCY : ONCE A WEEK;?
     Route: 058
     Dates: start: 20240829
  2. ARIPIPRAZOLE [Concomitant]
     Active Substance: ARIPIPRAZOLE
     Dates: start: 20240809
  3. ATORVASTATIN [Concomitant]
     Active Substance: ATORVASTATIN
     Dates: start: 20231215
  4. ENTRESTO [Concomitant]
     Active Substance: SACUBITRIL\VALSARTAN
     Dates: start: 20231016
  5. METOPROLOL [Concomitant]
     Active Substance: METOPROLOL
     Dates: start: 20231215
  6. FARXIGA [Concomitant]
     Active Substance: DAPAGLIFLOZIN PROPANEDIOL
     Dates: start: 20240111

REACTIONS (3)
  - Malaise [None]
  - Loss of consciousness [None]
  - Cardiac arrest [None]

NARRATIVE: CASE EVENT DATE: 20240831
